FAERS Safety Report 21794978 (Version 1)
Quarter: 2022Q4

REPORT INFORMATION
  Report Type: Other
  Country: US (occurrence: TH)
  Receive Date: 20221229
  Receipt Date: 20221229
  Transmission Date: 20230112
  Serious: Yes (Hospitalization, Other)
  Sender: FDA-Public Use
  Company Number: US-DECIPHERA PHARMACEUTICALS LLC-2022TH001100

PATIENT
  Sex: Male

DRUGS (2)
  1. QINLOCK [Suspect]
     Active Substance: RIPRETINIB
     Indication: Product used for unknown indication
     Dosage: 150 MILLIGRAM, QD
     Route: 048
     Dates: start: 20220907, end: 2022
  2. QINLOCK [Suspect]
     Active Substance: RIPRETINIB
     Dosage: 150 MILLIGRAM, BID
     Route: 048
     Dates: start: 20221202

REACTIONS (7)
  - Cerebrovascular accident [Recovering/Resolving]
  - Cerebral artery occlusion [Recovering/Resolving]
  - Hemiplegia [Recovering/Resolving]
  - Altered state of consciousness [Recovered/Resolved]
  - Aphasia [Not Recovered/Not Resolved]
  - Disease progression [Unknown]
  - Extra dose administered [Unknown]

NARRATIVE: CASE EVENT DATE: 20220101
